FAERS Safety Report 10261335 (Version 1)
Quarter: 2014Q2

REPORT INFORMATION
  Report Type: Spontaneous
  Country: US (occurrence: US)
  Receive Date: 20140626
  Receipt Date: 20140626
  Transmission Date: 20141212
  Serious: Yes (Disabling, Other)
  Sender: FDA-Public Use
  Company Number: US-AMGEN-USASP2014046522

PATIENT
  Age: 52 Year
  Sex: Female

DRUGS (4)
  1. NPLATE [Suspect]
     Indication: THROMBOCYTOPENIA
     Dosage: UNK
     Route: 065
     Dates: start: 201203
  2. PROMACTA [Concomitant]
  3. SYNTHROID [Concomitant]
  4. ARMOUR THYROID [Concomitant]

REACTIONS (8)
  - Disability [Unknown]
  - Weight increased [Unknown]
  - Mobility decreased [Unknown]
  - Hypersomnia [Unknown]
  - Hepatic enzyme abnormal [Unknown]
  - Fatigue [Unknown]
  - Insomnia [Unknown]
  - Abdominal pain [Unknown]
